FAERS Safety Report 6127666-2 (Version None)
Quarter: 2009Q1

REPORT INFORMATION
  Report Type: 
  Country: None (occurrence: None)
  Receive Date: 20090323
  Receipt Date: 20090310
  Transmission Date: 20090719
  Serious: Yes (Other)
  Sender: FDA-Public Use
  Company Number: US-PFIZER INC-2006096790

PATIENT
  Sex: Female

DRUGS (7)
  1. PROVERA [Suspect]
     Indication: HORMONE REPLACEMENT THERAPY
     Dosage: UNK
     Route: 048
     Dates: start: 19780101, end: 20000101
  2. PROVERA [Suspect]
     Indication: MENOPAUSAL SYMPTOMS
  3. PREMARIN [Suspect]
     Indication: HORMONE REPLACEMENT THERAPY
     Dosage: 1.25 MG, UNK
     Route: 065
     Dates: start: 19780101, end: 20000101
  4. PREMARIN [Suspect]
     Indication: MENOPAUSAL SYMPTOMS
  5. ASPIRIN [Concomitant]
     Indication: ANGIOPATHY
     Dosage: UNK
     Dates: start: 19890101, end: 20050101
  6. LIPITOR [Concomitant]
     Indication: HYPERLIPIDAEMIA
     Dosage: UNK
     Dates: start: 19990101, end: 20050101
  7. ACTONEL [Concomitant]
     Indication: OSTEOPOROSIS
     Dosage: UNK
     Dates: start: 20000101, end: 20050101

REACTIONS (1)
  - BREAST CANCER FEMALE [None]
